FAERS Safety Report 6690322-6 (Version None)
Quarter: 2010Q2

REPORT INFORMATION
  Report Type: 
  Country: None (occurrence: None)
  Receive Date: 20100421
  Receipt Date: 20100416
  Transmission Date: 20101027
  Serious: Yes (Death, Hospitalization, Disabling)
  Sender: FDA-Public Use
  Company Number: PHHY2009JP23854

PATIENT
  Sex: Female

DRUGS (3)
  1. GLEEVEC [Suspect]
     Indication: CHRONIC MYELOID LEUKAEMIA
     Dosage: 300 MG/DAY
     Route: 048
     Dates: start: 20020107, end: 20071022
  2. GLEEVEC [Suspect]
     Dosage: 400 MG/DAY
     Route: 048
     Dates: start: 20071023, end: 20090608
  3. WARFARIN SODIUM [Concomitant]
     Dosage: UNK
     Route: 048

REACTIONS (8)
  - ANAEMIA [None]
  - BLOOD CREATININE INCREASED [None]
  - BRAIN HERNIATION [None]
  - BRAIN NEOPLASM [None]
  - HYPOPHAGIA [None]
  - NAUSEA [None]
  - PLEURAL EFFUSION [None]
  - RENAL DISORDER [None]
